FAERS Safety Report 25251225 (Version 2)
Quarter: 2025Q2

REPORT INFORMATION
  Report Type: Report from Study
  Country: US (occurrence: US)
  Receive Date: 20250429
  Receipt Date: 20250506
  Transmission Date: 20250717
  Serious: Yes (Other)
  Sender: AMGEN
  Company Number: US-AMGEN-USASL2024147212

PATIENT
  Age: 54 Year
  Sex: Female

DRUGS (2)
  1. ENBREL [Suspect]
     Active Substance: ETANERCEPT
     Indication: Psoriatic arthropathy
     Dosage: 50 MILLIGRAM, QWK
     Route: 058
     Dates: start: 202102, end: 2025
  2. POISON IVY [Concomitant]
     Active Substance: TOXICODENDRON RADICANS LEAF
     Route: 065

REACTIONS (18)
  - Immunosuppression [Unknown]
  - Clostridium difficile colitis [Unknown]
  - Irritable bowel syndrome [Unknown]
  - Crohn^s disease [Not Recovered/Not Resolved]
  - Therapeutic product effect decreased [Unknown]
  - Gastrointestinal infection [Recovering/Resolving]
  - Therapy interrupted [Unknown]
  - Therapeutic response unexpected [Unknown]
  - Dermatitis contact [Unknown]
  - Iron deficiency anaemia [Unknown]
  - Aphthous ulcer [Unknown]
  - Subcutaneous drug absorption impaired [Unknown]
  - Skin disorder [Unknown]
  - Peripheral swelling [Unknown]
  - Depression [Unknown]
  - Psoriasis [Unknown]
  - Accidental exposure to product [Unknown]
  - Incorrect dose administered by device [Unknown]

NARRATIVE: CASE EVENT DATE: 20210101
